FAERS Safety Report 16696826 (Version 1)
Quarter: 2019Q3

REPORT INFORMATION
  Report Type: Spontaneous
  Country: GR (occurrence: GR)
  Receive Date: 20190813
  Receipt Date: 20190813
  Transmission Date: 20191004
  Serious: Yes (Hospitalization)
  Sender: FDA-Public Use
  Company Number: GR-TEVA-2019-GR-1088234

PATIENT
  Age: 31 Year
  Sex: Male
  Weight: 71 kg

DRUGS (5)
  1. METHYLPREDNISOLONE. [Concomitant]
     Active Substance: METHYLPREDNISOLONE
     Dosage: 64 MILLIGRAM DAILY; DIVIDED IN 3 DOSES
     Route: 048
     Dates: start: 20190304, end: 20190313
  2. METHYLPREDNISOLONE. [Concomitant]
     Active Substance: METHYLPREDNISOLONE
     Dosage: 80 MILLIGRAM DAILY; DIVIDED IN 2 DOSES
     Route: 042
     Dates: start: 20190314
  3. INCB039110 OR PLACEBO(CODE NOT BROKEN) [Concomitant]
     Indication: ACUTE GRAFT VERSUS HOST DISEASE
     Dosage: BLINDED INFORMATION WITHHELD
     Dates: start: 20190103, end: 20190120
  4. CICLOSPORIN [Suspect]
     Active Substance: CYCLOSPORINE
     Indication: ACUTE GRAFT VERSUS HOST DISEASE
     Route: 065
     Dates: start: 20190224, end: 20190303
  5. METHYLPREDNISOLONE. [Concomitant]
     Active Substance: METHYLPREDNISOLONE
     Indication: ACUTE GRAFT VERSUS HOST DISEASE
     Dosage: 48 MILLIGRAM DAILY;
     Route: 048
     Dates: start: 20190115

REACTIONS (2)
  - Thrombotic microangiopathy [Recovered/Resolved]
  - Cystitis haemorrhagic [Recovered/Resolved]

NARRATIVE: CASE EVENT DATE: 20190126
